FAERS Safety Report 16117910 (Version 1)
Quarter: 2019Q1

REPORT INFORMATION
  Report Type: Spontaneous
  Country: US (occurrence: US)
  Receive Date: 20190222
  Receipt Date: 20190222
  Transmission Date: 20190418
  Serious: Yes (Other)
  Sender: FDA-Public Use
  Company Number: None

PATIENT
  Age: 27 Year
  Sex: Female
  Weight: 48.53 kg

DRUGS (1)
  1. TOPIRAMATE. [Suspect]
     Active Substance: TOPIRAMATE
     Indication: MIGRAINE
     Dosage: ?          OTHER FREQUENCY:3X1DAY 4XDAY;?
     Route: 048
     Dates: start: 2007, end: 2018

REACTIONS (4)
  - Dizziness [None]
  - Product substitution issue [None]
  - Lethargy [None]
  - Nausea [None]

NARRATIVE: CASE EVENT DATE: 20170120
